FAERS Safety Report 22895202 (Version 3)
Quarter: 2024Q1

REPORT INFORMATION
  Report Type: Report from Study
  Country: JP (occurrence: JP)
  Receive Date: 20230901
  Receipt Date: 20240123
  Transmission Date: 20240409
  Serious: Yes (Death, Other)
  Sender: FDA-Public Use
  Company Number: JP-ABBVIE-5392102

PATIENT
  Age: 79 Year
  Sex: Female
  Weight: 57 kg

DRUGS (6)
  1. RINVOQ [Suspect]
     Active Substance: UPADACITINIB
     Indication: Rheumatoid arthritis
     Dosage: FORM STRENGTH:15 MILLIGRAM
     Route: 048
     Dates: start: 20200803, end: 20221024
  2. AMLODIPINE BESYLATE\AZILSARTAN [Concomitant]
     Active Substance: AMLODIPINE BESYLATE\AZILSARTAN
     Indication: Product used for unknown indication
     Dosage: 1 TABLET
     Route: 048
     Dates: start: 20200620
  3. CELECOXIB [Concomitant]
     Active Substance: CELECOXIB
     Indication: Rheumatoid arthritis
     Dosage: 200 MILLIGRAM
     Dates: start: 20140704
  4. ATORVASTATIN [Concomitant]
     Active Substance: ATORVASTATIN
     Indication: Product used for unknown indication
     Dosage: FORM STRENGTH 10 MILLIGRAM?CALCIUM HYDRATE
     Route: 048
     Dates: start: 20190409
  5. LEVOTHYROXINE SODIUM [Concomitant]
     Active Substance: LEVOTHYROXINE SODIUM
     Indication: Product used for unknown indication
     Dosage: 100 MICROGRAM?HYDRATE
     Route: 048
     Dates: start: 20140626
  6. MONTELUKAST SODIUM [Concomitant]
     Active Substance: MONTELUKAST SODIUM
     Indication: Product used for unknown indication
     Dosage: FORM STRENGTH:10 MILLIGRAM
     Route: 048
     Dates: start: 20190409

REACTIONS (1)
  - Rectal cancer [Fatal]

NARRATIVE: CASE EVENT DATE: 20221024
